FAERS Safety Report 4964441-6 (Version None)
Quarter: 2006Q1

REPORT INFORMATION
  Report Type: 
  Country: None (occurrence: None)
  Receive Date: 20060331
  Receipt Date: 20060320
  Transmission Date: 20060701
  Serious: Yes (Hospitalization)
  Sender: FDA-Public Use
  Company Number: 2006RL000093

PATIENT
  Age: 63 Year
  Sex: Female

DRUGS (3)
  1. FENOFIBRATE [Suspect]
     Indication: HYPERLIPIDAEMIA
     Dosage: 200 MG; QD;
  2. SIMVASTATIN [Suspect]
     Indication: HYPERLIPIDAEMIA
     Dosage: 20 MG; QD;
  3. ENALAPRIL MALEATE [Concomitant]

REACTIONS (22)
  - AUTOIMMUNE THYROIDITIS [None]
  - BLOOD PRESSURE ABNORMAL [None]
  - CARPAL TUNNEL SYNDROME [None]
  - CONJUNCTIVAL DISORDER [None]
  - CONSTIPATION [None]
  - DRUG INTERACTION [None]
  - DRY SKIN [None]
  - DYSPHONIA [None]
  - FATIGUE [None]
  - HAIR TEXTURE ABNORMAL [None]
  - HEPATOMEGALY [None]
  - HYPERLIPIDAEMIA [None]
  - HYPOTHYROIDISM [None]
  - MYALGIA [None]
  - MYOPATHY [None]
  - NORMOCHROMIC NORMOCYTIC ANAEMIA [None]
  - OLIGURIA [None]
  - RED BLOOD CELL SEDIMENTATION RATE INCREASED [None]
  - RENAL FAILURE ACUTE [None]
  - RHABDOMYOLYSIS [None]
  - SWELLING FACE [None]
  - SWOLLEN TONGUE [None]
